FAERS Safety Report 11751078 (Version 2)
Quarter: 2015Q4

REPORT INFORMATION
  Report Type: Spontaneous
  Country: US (occurrence: US)
  Receive Date: 20151118
  Receipt Date: 20151217
  Transmission Date: 20160304
  Serious: Yes (Hospitalization)
  Sender: FDA-Public Use
  Company Number: US-NOVOPROD-448266

PATIENT
  Age: 91 Year
  Sex: Female
  Weight: 67.12 kg

DRUGS (2)
  1. LEVEMIR [Suspect]
     Active Substance: INSULIN DETEMIR
     Indication: TYPE 1 DIABETES MELLITUS
     Dosage: 20 UNITS IN THE AM AND 12-15 UNTIS IN THE PM BID
     Route: 058
     Dates: start: 2010
  2. NOVOLOG [Suspect]
     Active Substance: INSULIN ASPART
     Indication: TYPE 1 DIABETES MELLITUS
     Dosage: 7 UNITS IN THE AM AND 5 UNITS AT BEDTIME
     Route: 058
     Dates: start: 2010

REACTIONS (2)
  - Hypoglycaemia [Recovered/Resolved]
  - Blister [Recovering/Resolving]

NARRATIVE: CASE EVENT DATE: 20141109
